FAERS Safety Report 5160591-2 (Version None)
Quarter: 2006Q4

REPORT INFORMATION
  Report Type: 
  Country: None (occurrence: None)
  Receive Date: 20061129
  Receipt Date: 20061102
  Transmission Date: 20070319
  Serious: Yes (Hospitalization)
  Sender: FDA-Public Use
  Company Number: US-MERCK-0611USA00849

PATIENT
  Age: 79 Year
  Sex: Male
  Weight: 65 kg

DRUGS (12)
  1. FOSAMAX [Suspect]
     Indication: OSTEOPOROSIS
     Route: 048
     Dates: end: 20060801
  2. SIMVASTATIN [Concomitant]
     Route: 065
  3. ISORDIL [Concomitant]
     Route: 065
  4. LISINOPRIL [Concomitant]
     Route: 065
  5. GLIPIZIDE [Concomitant]
     Route: 065
  6. AMITRIPTYLINE HYDROCHLORIDE [Concomitant]
     Route: 065
  7. PENTOXIFYLLINE [Concomitant]
     Route: 065
  8. CENTRUM SILVER [Concomitant]
     Route: 065
  9. ASPIRIN [Concomitant]
     Route: 065
  10. CITRACAL [Concomitant]
     Route: 065
  11. VITAMIN D (UNSPECIFIED) [Concomitant]
     Route: 065
  12. LASIX [Concomitant]
     Route: 065

REACTIONS (14)
  - ABDOMINAL PAIN [None]
  - ACQUIRED OESOPHAGEAL WEB [None]
  - ARTHRALGIA [None]
  - ASTHMA [None]
  - BACK PAIN [None]
  - CHEST PAIN [None]
  - DYSPNOEA [None]
  - EPIGLOTTIS ULCER [None]
  - EPIGLOTTITIS [None]
  - FOREIGN BODY TRAUMA [None]
  - HIATUS HERNIA [None]
  - PHARYNGOLARYNGEAL PAIN [None]
  - PLEURAL EFFUSION [None]
  - RESPIRATORY DISTRESS [None]
